FAERS Safety Report 23118147 (Version 1)
Quarter: 2023Q4

REPORT INFORMATION
  Report Type: Spontaneous
  Country: ES (occurrence: ES)
  Receive Date: 20231027
  Receipt Date: 20231027
  Transmission Date: 20240110
  Serious: Yes (Disabling, Other)
  Sender: FDA-Public Use
  Company Number: ES-009507513-2310ESP002916

PATIENT
  Age: 39 Year
  Sex: Male
  Weight: 99 kg

DRUGS (1)
  1. PEMBROLIZUMAB [Suspect]
     Active Substance: PEMBROLIZUMAB
     Indication: Squamous cell carcinoma of head and neck
     Dosage: UNK UNK, Q3W, UNK, Q3W; STRENGHT: 1 VIAL (100 MG/4ML)
     Route: 042
     Dates: start: 20230907

REACTIONS (3)
  - Cancer pain [Recovering/Resolving]
  - Tumour pseudoprogression [Unknown]
  - Inflammation [Unknown]

NARRATIVE: CASE EVENT DATE: 20230901
